FAERS Safety Report 8512054-1 (Version None)
Quarter: 2012Q3

REPORT INFORMATION
  Report Type: 
  Country: None (occurrence: None)
  Receive Date: 20120716
  Receipt Date: 20120705
  Transmission Date: 20120928
  Serious: Yes (Other)
  Sender: FDA-Public Use
  Company Number: JP-VERTEX PHARMACEUTICALS INC.-AE-2012-009739

PATIENT
  Age: 66 Year
  Sex: Male

DRUGS (11)
  1. WARFARIN SODIUM [Concomitant]
     Route: 048
  2. TELAVIC (TELAPREVIR) [Suspect]
     Indication: HEPATITIS C
     Route: 048
     Dates: start: 20120621, end: 20120624
  3. PEGINTERFERON ALFA-2B [Concomitant]
     Indication: HEPATITIS C
     Route: 058
     Dates: start: 20120621, end: 20120624
  4. URSO 250 [Concomitant]
  5. BISOPROLOL FUMARATE [Concomitant]
     Route: 048
  6. NIZORAL [Concomitant]
     Route: 061
     Dates: start: 20120626
  7. REBETOL [Concomitant]
     Indication: HEPATITIS C
     Route: 048
     Dates: start: 20120621, end: 20120624
  8. HYPOCA [Concomitant]
     Route: 048
  9. LOXOPROFEN SODIUM HYDRATE [Concomitant]
     Route: 048
     Dates: start: 20120621, end: 20120625
  10. MUCOSTA [Concomitant]
     Route: 048
     Dates: start: 20120621, end: 20120627
  11. NEW LECICARBON [Concomitant]
     Route: 054
     Dates: start: 20120627, end: 20120627

REACTIONS (3)
  - RENAL FAILURE ACUTE [None]
  - BLOOD URIC ACID INCREASED [None]
  - BLOOD CREATININE INCREASED [None]
